FAERS Safety Report 4835628-8 (Version None)
Quarter: 2005Q4

REPORT INFORMATION
  Report Type: 
  Country: None (occurrence: None)
  Receive Date: 20051123
  Receipt Date: 20051111
  Transmission Date: 20060501
  Serious: Yes (Other)
  Sender: FDA-Public Use
  Company Number: 2005UW17439

PATIENT
  Age: 54 Year
  Sex: Male
  Weight: 88 kg

DRUGS (3)
  1. ATACAND [Suspect]
     Indication: HYPERTENSION
     Route: 048
     Dates: start: 20030101
  2. ASPIRIN [Concomitant]
     Route: 048
     Dates: start: 20000101
  3. LIPITOR [Concomitant]
     Indication: HYPERCHOLESTEROLAEMIA
     Route: 048
     Dates: start: 20000101

REACTIONS (3)
  - FATIGUE [None]
  - INTRACRANIAL ANEURYSM [None]
  - PAIN IN EXTREMITY [None]
